FAERS Safety Report 7449686-8 (Version None)
Quarter: 2011Q2

REPORT INFORMATION
  Report Type: 
  Country: None (occurrence: None)
  Receive Date: 20110421
  Receipt Date: 20110405
  Transmission Date: 20111010
  Serious: Yes (Other)
  Sender: FDA-Public Use
  Company Number: PHHY2011GB32730

PATIENT
  Age: 81 Year
  Sex: Female

DRUGS (3)
  1. SIMVASTATIN [Concomitant]
  2. VISUDYNE [Suspect]
     Indication: CHOROIDAL NEOVASCULARISATION
  3. ENALAPRIL [Concomitant]

REACTIONS (1)
  - DACRYOSTENOSIS ACQUIRED [None]
